FAERS Safety Report 8377731-4 (Version None)
Quarter: 2012Q2

REPORT INFORMATION
  Report Type: 
  Country: None (occurrence: None)
  Receive Date: 20120522
  Receipt Date: 20120511
  Transmission Date: 20120825
  Serious: Yes (Other)
  Sender: FDA-Public Use
  Company Number: FR-VIIV HEALTHCARE LIMITED-B0800714A

PATIENT
  Sex: Male

DRUGS (2)
  1. ABACAVIR SULFATE/LAMIVUDINE [Suspect]
     Indication: HIV INFECTION CDC CATEGORY B2
     Dosage: 1UNIT PER DAY
     Route: 048
     Dates: start: 20091115, end: 20110127
  2. REYATAZ [Suspect]
     Indication: HIV INFECTION CDC CATEGORY B2
     Route: 048
     Dates: start: 20091115, end: 20110127

REACTIONS (4)
  - AMYLASE INCREASED [None]
  - LIPASE INCREASED [None]
  - VOMITING [None]
  - PANCREATIC DISORDER [None]
